FAERS Safety Report 18353299 (Version 1)
Quarter: 2020Q4

REPORT INFORMATION
  Report Type: Spontaneous
  Country: NL (occurrence: NL)
  Receive Date: 20201007
  Receipt Date: 20201007
  Transmission Date: 20210114
  Serious: Yes (Other)
  Sender: FDA-Public Use
  Company Number: NL-TEVA-2020-NL-1835246

PATIENT
  Age: 76 Year
  Sex: Male
  Weight: 80 kg

DRUGS (7)
  1. METHOTREXAAT [METHOTREXATE] [Suspect]
     Active Substance: METHOTREXATE
     Indication: RHEUMATOID ARTHRITIS
     Dosage: 7.5 MG ,THERAPY END DATE:ASKU
     Dates: start: 2008
  2. MIRTAZAPINE TABLET 15MG / BRAND NAME NOT SPECIFIED [Concomitant]
     Active Substance: MIRTAZAPINE
     Dosage: 15 MG (MILLIGRAM),THERAPY START DATE :ASKU,THERAPY END DATE :ASKU
  3. HYDROCHLOORTHIAZIDE TABLET 12,5MG / BRAND NAME NOT SPECIFIED [Concomitant]
     Active Substance: HYDROCHLOROTHIAZIDE
     Dosage: 12,5 MG (MILLIGRAM),THERAPY START DATE :ASKU,THERAPY END DATE :ASKU
  4. PREDNISON TABLET 5MG / BRAND NAME NOT SPECIFIED [Concomitant]
     Dosage: 5 MG (MILLIGRAM),THERAPY START DATE :ASKU,THERAPY END DATE :ASKU
  5. BROMAZEPAM TABLET 3MG / BRAND NAME NOT SPECIFIED [Concomitant]
     Dosage: 3 MG (MILLIGRAM),THERAPY START DATE :ASKU,THERAPY END DATE :ASKU
  6. PANTOPRAZOL TABLET MSR 20MG / PANTOZOL TABLET MSR 20MG [Concomitant]
     Dosage: 20 MG (MILLIGRAM),THERAPY START DATE :ASKU,THERAPY END DATE :ASKU
  7. NAPROXEN TABLET 500MG / BRAND NAME NOT SPECIFIED [Concomitant]
     Dosage: 500 MG (MILLIGRAM),THERAPY START DATE :ASKU,THERAPY END DATE :ASKU

REACTIONS (1)
  - Diffuse large B-cell lymphoma [Not Recovered/Not Resolved]

NARRATIVE: CASE EVENT DATE: 20200303
